FAERS Safety Report 9491696 (Version 2)
Quarter: 2013Q4

REPORT INFORMATION
  Report Type: Report from Study
  Country: CA (occurrence: CA)
  Receive Date: 20130830
  Receipt Date: 20131129
  Transmission Date: 20140711
  Serious: Yes (Other)
  Sender: FDA-Public Use
  Company Number: CA-ROCHE-1268407

PATIENT
  Sex: Male
  Weight: 56.7 kg

DRUGS (13)
  1. RITUXAN [Suspect]
     Indication: POLYMYOSITIS
     Dosage: FREQUENCY:  DAY 1 AND DAY 15
     Route: 042
     Dates: start: 20120112
  2. RITUXAN [Suspect]
     Indication: OFF LABEL USE
  3. DIPHENHYDRAMINE HCL [Concomitant]
     Indication: PREMEDICATION
     Route: 042
     Dates: start: 20120112
  4. ACETAMINOPHEN [Concomitant]
     Indication: PREMEDICATION
     Route: 048
     Dates: start: 20120112
  5. METHYLPREDNISOLONE [Concomitant]
     Indication: PREMEDICATION
     Route: 042
     Dates: start: 20120112
  6. OLMETEC [Concomitant]
     Dosage: PATIENT WILL HOLD DAY OF INFUSION
     Route: 065
  7. METHOTREXATE [Concomitant]
     Route: 048
  8. PREDNISONE [Concomitant]
  9. JANUMET [Concomitant]
  10. IVIG [Concomitant]
  11. ACTONEL [Concomitant]
     Route: 065
  12. DIAMICRON [Concomitant]
  13. FOLIC ACID [Concomitant]

REACTIONS (3)
  - Tuberculin test positive [Not Recovered/Not Resolved]
  - Malaise [Unknown]
  - Off label use [Unknown]
